FAERS Safety Report 4632516-7 (Version None)
Quarter: 2005Q2

REPORT INFORMATION
  Report Type: 
  Country: None (occurrence: None)
  Receive Date: 20050411
  Receipt Date: 20030512
  Transmission Date: 20051028
  Serious: Yes (Life-Threatening, Hospitalization)
  Sender: FDA-Public Use
  Company Number: 03-00532

PATIENT
  Age: 6 Year
  Sex: Male

DRUGS (2)
  1. IBUPROFEN [Suspect]
     Indication: PYREXIA
     Dates: start: 20030305, end: 20030306
  2. MOTRIN [Concomitant]

REACTIONS (4)
  - BLINDNESS UNILATERAL [None]
  - DYSPNOEA [None]
  - LUNG DISORDER [None]
  - STEVENS-JOHNSON SYNDROME [None]
